FAERS Safety Report 9805737 (Version 5)
Quarter: 2014Q1

REPORT INFORMATION
  Report Type: Spontaneous
  Country: GR (occurrence: GR)
  Receive Date: 20140109
  Receipt Date: 20140331
  Transmission Date: 20141002
  Serious: Yes (Death, Hospitalization)
  Sender: FDA-Public Use
  Company Number: PHHY2014GR000701

PATIENT
  Age: 41 Year
  Sex: Male
  Weight: 69 kg

DRUGS (1)
  1. GILENYA [Suspect]
     Indication: MULTIPLE SCLEROSIS
     Route: 048
     Dates: start: 20120813, end: 20121030

REACTIONS (35)
  - Central nervous system lesion [Fatal]
  - Nuclear magnetic resonance imaging abnormal [Fatal]
  - Gliomatosis cerebri [Unknown]
  - Coma [Unknown]
  - Pyrexia [Unknown]
  - Malaise [Recovering/Resolving]
  - Respiratory disorder [Recovering/Resolving]
  - Dyspnoea [Recovering/Resolving]
  - Convulsion [Unknown]
  - Quadriplegia [Unknown]
  - Hyperreflexia [Unknown]
  - Somnolence [Unknown]
  - Hypoxia [Unknown]
  - Cerebellar syndrome [Unknown]
  - Mydriasis [Unknown]
  - Hypokinesia [Unknown]
  - Sepsis [Unknown]
  - Polyuria [Unknown]
  - Respiratory failure [Unknown]
  - Tachypnoea [Unknown]
  - Sinus tachycardia [Unknown]
  - Tachycardia [Unknown]
  - Vomiting [Unknown]
  - Bradycardia [Unknown]
  - Hepatic enzyme increased [Unknown]
  - Multiple sclerosis relapse [Unknown]
  - Muscle spasticity [Unknown]
  - Hypoaesthesia [Unknown]
  - Ataxia [Unknown]
  - Dysarthria [Unknown]
  - Coordination abnormal [Unknown]
  - Nystagmus [Unknown]
  - Dysphagia [Unknown]
  - Speech disorder developmental [Unknown]
  - Paresis [Unknown]
